FAERS Safety Report 4401240-8 (Version None)
Quarter: 2004Q3

REPORT INFORMATION
  Report Type: 
  Country: None (occurrence: None)
  Receive Date: 20040907
  Receipt Date: 20040114
  Transmission Date: 20050211
  Serious: Yes (Hospitalization)
  Sender: FDA-Public Use
  Company Number: US-BRISTOL-MYERS SQUIBB COMPANY-12478657

PATIENT
  Age: 84 Year
  Sex: Female
  Weight: 60 kg

DRUGS (4)
  1. COUMADIN [Suspect]
     Dates: end: 20031203
  2. PLAVIX [Suspect]
     Dates: start: 20031203
  3. ASPIRIN [Concomitant]
     Dosage: TAKEN FOR A FEW YEARS.
  4. THYROID TAB [Concomitant]

REACTIONS (3)
  - BALANCE DISORDER [None]
  - CEREBROVASCULAR ACCIDENT [None]
  - DIZZINESS [None]
